FAERS Safety Report 10779831 (Version 1)
Quarter: 2015Q1

REPORT INFORMATION
  Report Type: Spontaneous
  Country: CH (occurrence: CH)
  Receive Date: 20150210
  Receipt Date: 20150210
  Transmission Date: 20150721
  Serious: Yes (Hospitalization)
  Sender: FDA-Public Use
  Company Number: CH-PFIZER INC-2015051682

PATIENT
  Age: 69 Year
  Sex: Female
  Weight: 59 kg

DRUGS (13)
  1. PANTOZOL [Suspect]
     Active Substance: PANTOPRAZOLE SODIUM
     Indication: GASTROOESOPHAGEAL REFLUX PROPHYLAXIS
     Dosage: 40 MG, DAILY
     Route: 048
  2. ERBITUX [Suspect]
     Active Substance: CETUXIMAB
     Dosage: UNK UNK, CYCLIC
     Route: 042
  3. OXALIPLATIN. [Suspect]
     Active Substance: OXALIPLATIN
     Indication: METASTATIC NEOPLASM
     Dosage: UNK, 4 CYCLIC
     Dates: start: 20140915, end: 20141127
  4. SEREVENT [Concomitant]
     Active Substance: SALMETEROL XINAFOATE
     Dosage: UNK
  5. 5-FLUOROURACIL ^BIOSYN^ [Suspect]
     Active Substance: FLUOROURACIL
     Indication: METASTATIC NEOPLASM
     Dosage: UNK, (5 CYCLIC)
     Route: 042
     Dates: start: 20140915, end: 20141127
  6. 5-FLUOROURACIL ^BIOSYN^ [Suspect]
     Active Substance: FLUOROURACIL
     Dosage: UNK
     Route: 042
  7. ALVESCO [Concomitant]
     Active Substance: CICLESONIDE
     Dosage: UNK
  8. PRIMPERAN [Concomitant]
     Active Substance: METOCLOPRAMIDE HYDROCHLORIDE
     Dosage: UNK
  9. OXALIPLATIN. [Suspect]
     Active Substance: OXALIPLATIN
     Dosage: UNK, CYCLIC
     Route: 042
  10. FOLINIC ACID [Suspect]
     Active Substance: LEUCOVORIN
     Indication: METASTATIC NEOPLASM
     Dosage: 200 MG, CYCLIC (4 CYCLIC, NOT ON FIRST CYCLE BECAUSE OF RENAL DYSFUNCTION)
     Route: 042
     Dates: start: 20140115, end: 20141127
  11. FOLINIC ACID [Suspect]
     Active Substance: LEUCOVORIN
     Dosage: UNK, CYCLIC
     Route: 042
  12. PANTOZOL [Suspect]
     Active Substance: PANTOPRAZOLE SODIUM
     Dosage: UNK
  13. ERBITUX [Suspect]
     Active Substance: CETUXIMAB
     Indication: METASTATIC NEOPLASM
     Dosage: DAY 1 AND DAY 8 FOR 14 DAYS CYCLE DURATION (5 CYCLIC)
     Route: 042
     Dates: start: 20140915, end: 20141127

REACTIONS (5)
  - Muscle contractions involuntary [Recovering/Resolving]
  - Hypocalcaemia [Recovering/Resolving]
  - Muscular weakness [Recovering/Resolving]
  - Hypomagnesaemia [Recovering/Resolving]
  - Intention tremor [Recovering/Resolving]

NARRATIVE: CASE EVENT DATE: 201409
